FAERS Safety Report 7246628-5 (Version None)
Quarter: 2011Q1

REPORT INFORMATION
  Report Type: 
  Country: None (occurrence: None)
  Receive Date: 20110127
  Receipt Date: 20110113
  Transmission Date: 20110831
  Serious: No
  Sender: FDA-Public Use
  Company Number: US-BIOGENIDEC-2011BI002535

PATIENT
  Age: 53 Year
  Sex: Female

DRUGS (1)
  1. TYSABRI [Suspect]
     Indication: MULTIPLE SCLEROSIS
     Route: 042
     Dates: start: 20090721

REACTIONS (9)
  - POOR VENOUS ACCESS [None]
  - INFUSION SITE HAEMORRHAGE [None]
  - FATIGUE [None]
  - GAIT DISTURBANCE [None]
  - MUSCULAR WEAKNESS [None]
  - BALANCE DISORDER [None]
  - URINARY TRACT INFECTION [None]
  - HYPOAESTHESIA [None]
  - PERONEAL NERVE PALSY [None]
